FAERS Safety Report 12580876 (Version 1)
Quarter: 2016Q3

REPORT INFORMATION
  Report Type: Spontaneous
  Country: DE (occurrence: DE)
  Receive Date: 20160721
  Receipt Date: 20160721
  Transmission Date: 20161109
  Serious: Yes (Hospitalization, Other)
  Sender: FDA-Public Use
  Company Number: DE-009507513-1607DEU008036

PATIENT
  Age: 78 Year
  Sex: Female

DRUGS (1)
  1. KEYTRUDA [Suspect]
     Active Substance: PEMBROLIZUMAB
     Indication: METASTATIC MALIGNANT MELANOMA
     Dosage: STRENGTH: 2 MG/KG BODY WEIGHT
     Route: 042
     Dates: start: 20160628, end: 2016

REACTIONS (1)
  - Sepsis [Recovering/Resolving]

NARRATIVE: CASE EVENT DATE: 2016
